FAERS Safety Report 14097612 (Version 2)
Quarter: 2017Q4

REPORT INFORMATION
  Report Type: Spontaneous
  Country: US (occurrence: US)
  Receive Date: 20171017
  Receipt Date: 20171123
  Transmission Date: 20180321
  Serious: Yes (Other)
  Sender: FDA-Public Use
  Company Number: US-AMGEN-USASP2017155145

PATIENT
  Age: 62 Year
  Sex: Female

DRUGS (1)
  1. ENBREL [Suspect]
     Active Substance: ETANERCEPT
     Indication: RHEUMATOID ARTHRITIS
     Dosage: 50 MG, QWK
     Route: 058
     Dates: start: 20170921, end: 2017

REACTIONS (8)
  - Disturbance in attention [Recovered/Resolved]
  - Adverse event [Not Recovered/Not Resolved]
  - Injection site erythema [Unknown]
  - Dizziness [Recovered/Resolved]
  - Tremor [Recovered/Resolved]
  - Scratch [Unknown]
  - Hyperhidrosis [Recovered/Resolved]
  - Injection site rash [Recovered/Resolved]

NARRATIVE: CASE EVENT DATE: 2017
